FAERS Safety Report 21628961 (Version 3)
Quarter: 2022Q4

REPORT INFORMATION
  Report Type: Spontaneous
  Country: US (occurrence: US)
  Receive Date: 20221122
  Receipt Date: 20221208
  Transmission Date: 20230113
  Serious: Yes (Hospitalization, Other)
  Sender: FDA-Public Use
  Company Number: US-SA-SAC20221116001370

PATIENT
  Age: 66 Year
  Sex: Male

DRUGS (26)
  1. TAXOTERE [Suspect]
     Active Substance: DOCETAXEL
     Indication: Non-small cell lung cancer metastatic
     Dosage: DAY 5 ON EVERY 21 DAYS
     Route: 042
     Dates: start: 20221021
  2. OBINUTUZUMAB [Suspect]
     Active Substance: OBINUTUZUMAB
     Indication: Non-small cell lung cancer metastatic
     Dates: start: 20221004
  3. ESCITALOPRAM [Concomitant]
     Active Substance: ESCITALOPRAM OXALATE
     Indication: Anxiety
     Dosage: 20 MG, QD
     Route: 048
  4. ESCITALOPRAM [Concomitant]
     Active Substance: ESCITALOPRAM OXALATE
     Indication: Depression
  5. SENNA-S [DOCUSATE SODIUM;SENNOSIDE A+B] [Concomitant]
     Indication: Constipation
     Route: 048
     Dates: start: 20220830
  6. TRAMADOL [Concomitant]
     Active Substance: TRAMADOL
     Indication: Pathological fracture
     Dates: start: 20220816
  7. TRAMADOL [Concomitant]
     Active Substance: TRAMADOL
     Dosage: EXTENDED RELEASE
     Dates: start: 20220816
  8. XARELTO [Concomitant]
     Active Substance: RIVAROXABAN
     Indication: Hypertension
     Dates: start: 20220920
  9. ALBUTEROL SULFATE [Concomitant]
     Active Substance: ALBUTEROL SULFATE
     Indication: Chronic obstructive pulmonary disease
  10. OMEPRAZOLE [Concomitant]
     Active Substance: OMEPRAZOLE
     Indication: Gastrooesophageal reflux disease
     Dosage: ONCE DAILY AS NEEDED
     Route: 048
  11. TYLENOL [Concomitant]
     Active Substance: ACETAMINOPHEN
     Indication: Pathological fracture
     Route: 048
     Dates: start: 20220816
  12. LACTULOSE [Concomitant]
     Active Substance: LACTULOSE
     Indication: Constipation
     Dosage: STRENGTH: 10 G/15 ML
     Route: 048
     Dates: start: 20221022
  13. DEXAMETHASONE [Concomitant]
     Active Substance: DEXAMETHASONE
     Indication: Prophylaxis
     Route: 048
     Dates: start: 20221022
  14. HYCODAN [HOMATROPINE METHYLBROMIDE;HYDROCODONE BITARTRATE] [Concomitant]
     Indication: Cough
     Dosage: EVERY 4-6 HOURS AS NEEDED
     Route: 048
     Dates: start: 20221013
  15. BENZONATATE [Concomitant]
     Active Substance: BENZONATATE
     Indication: Cough
     Dosage: THREE TIMES DAILY AS NEEDED
     Route: 048
     Dates: start: 20221025
  16. AZITHROMYCIN [Concomitant]
     Active Substance: AZITHROMYCIN
     Indication: Cough
     Route: 048
     Dates: start: 20221025, end: 20221029
  17. CEFPODOXIME [Concomitant]
     Active Substance: CEFPODOXIME
     Indication: Cough
     Route: 048
     Dates: start: 20221025, end: 20221103
  18. SENNOSIDES [Concomitant]
     Active Substance: SENNOSIDES
     Indication: Constipation
     Dosage: SENNOSIDE 8.5 MG/DOCUSATE 50 MG. 2 DF QD
  19. DOCUSATE [Concomitant]
     Active Substance: DOCUSATE
     Indication: Constipation
  20. RIVAROXABAN [Concomitant]
     Active Substance: RIVAROXABAN
     Dosage: 20MG
  21. ACETAMINOPHEN [Concomitant]
     Active Substance: ACETAMINOPHEN
     Dosage: 650MG
  22. HOMATROPINE METHYLBROMIDE [Concomitant]
     Active Substance: HOMATROPINE METHYLBROMIDE
  23. HYDROCODONE BITARTRATE [Concomitant]
     Active Substance: HYDROCODONE BITARTRATE
     Indication: Cough
  24. TRIMETHOPRIM [Concomitant]
     Active Substance: TRIMETHOPRIM
  25. FUROSEMIDE\POTASSIUM CHLORIDE [Concomitant]
     Active Substance: FUROSEMIDE\POTASSIUM CHLORIDE
     Dosage: 20MG
  26. GUAIFENESIN [Concomitant]
     Active Substance: GUAIFENESIN

REACTIONS (17)
  - Acute respiratory failure [Unknown]
  - Pneumonia [Not Recovered/Not Resolved]
  - Hypervolaemia [Not Recovered/Not Resolved]
  - Sinus tachycardia [Unknown]
  - Sepsis [Unknown]
  - Hypotension [Unknown]
  - Asthenia [Unknown]
  - Dyspnoea [Unknown]
  - Chest discomfort [Unknown]
  - Malaise [Unknown]
  - Rhonchi [Unknown]
  - Pallor [Unknown]
  - Lung opacity [Unknown]
  - Atelectasis [Unknown]
  - Pleural thickening [Unknown]
  - Tissue infiltration [Unknown]
  - Pleural effusion [Unknown]
